FAERS Safety Report 4644917-1 (Version None)
Quarter: 2005Q2

REPORT INFORMATION
  Report Type: 
  Country: None (occurrence: None)
  Receive Date: 20050422
  Receipt Date: 20050414
  Transmission Date: 20051028
  Serious: No
  Sender: FDA-Public Use
  Company Number: A001-002-006460

PATIENT
  Age: 82 Year
  Sex: Female

DRUGS (4)
  1. ARICEPT [Suspect]
     Indication: DEMENTIA ALZHEIMER'S TYPE
     Dosage: 5 MG, 1 IN 1 D, ORAL
     Route: 048
  2. LISINOPRIL [Concomitant]
  3. CARDIZEM (DILTAZEM HYDROCHLORIDE) [Concomitant]
  4. TIMOLOL MALEATE [Concomitant]

REACTIONS (1)
  - ANGIONEUROTIC OEDEMA [None]
